FAERS Safety Report 8317572-7 (Version None)
Quarter: 2012Q2

REPORT INFORMATION
  Report Type: 
  Country: None (occurrence: None)
  Receive Date: 20120427
  Receipt Date: 20110610
  Transmission Date: 20120825
  Serious: No
  Sender: FDA-Public Use
  Company Number: US-GLAXOSMITHKLINE-A0932074A

PATIENT
  Age: 38 Year
  Sex: Female
  Weight: 74.1 kg

DRUGS (6)
  1. SUMATRIPTAN [Suspect]
     Indication: MIGRAINE
     Dosage: 6MG SINGLE DOSE
     Route: 065
     Dates: start: 20110524, end: 20110524
  2. EYE DROPS [Concomitant]
  3. SOMA [Concomitant]
  4. TOPAMAX [Concomitant]
  5. ZOFRAN [Suspect]
     Indication: ABDOMINAL DISCOMFORT
     Route: 065
     Dates: start: 20110524, end: 20110524
  6. PRILOSEC [Concomitant]

REACTIONS (3)
  - DRUG INEFFECTIVE [None]
  - FEELING ABNORMAL [None]
  - ABDOMINAL DISCOMFORT [None]
